FAERS Safety Report 9261028 (Version 1)
Quarter: 2013Q2

REPORT INFORMATION
  Report Type: Spontaneous
  Country: US (occurrence: US)
  Receive Date: 20130429
  Receipt Date: 20130429
  Transmission Date: 20140414
  Serious: No
  Sender: FDA-Public Use
  Company Number: US-AMGEN-USASP2012057036

PATIENT
  Sex: Male

DRUGS (1)
  1. SENSIPAR [Suspect]
     Indication: HYPERPARATHYROIDISM SECONDARY
     Dosage: UNK UNK, QD
     Route: 048
     Dates: end: 20110615

REACTIONS (1)
  - Gastrointestinal disorder [Unknown]
